FAERS Safety Report 10754831 (Version 1)
Quarter: 2015Q1

REPORT INFORMATION
  Report Type: Spontaneous
  Country: US (occurrence: None)
  Receive Date: 20150130
  Receipt Date: 20150130
  Transmission Date: 20150721
  Serious: Yes (Hospitalization, Disabling)
  Sender: FDA-Public Use
  Company Number: None

PATIENT
  Age: 61 Year
  Sex: Male
  Weight: 99.79 kg

DRUGS (11)
  1. LORAZEPAM. [Concomitant]
     Active Substance: LORAZEPAM
  2. LOVASTATIN. [Concomitant]
     Active Substance: LOVASTATIN
  3. FENOFIBRATE. [Concomitant]
     Active Substance: FENOFIBRATE
  4. CLONIDINE. [Concomitant]
     Active Substance: CLONIDINE
  5. LISINOPRIL. [Concomitant]
     Active Substance: LISINOPRIL
  6. OMERAZOLE [Concomitant]
     Active Substance: OMEPRAZOLE
  7. TRADJENTA [Suspect]
     Active Substance: LINAGLIPTIN
     Indication: DIABETES MELLITUS
     Dosage: 1 DAY 1DA MOUTH
     Route: 048
     Dates: start: 201311, end: 20140115
  8. FINASTERIDE. [Concomitant]
     Active Substance: FINASTERIDE
  9. TERAZOSIN [Concomitant]
     Active Substance: TERAZOSIN\TERAZOSIN HYDROCHLORIDE
  10. AMLODIPINE [Concomitant]
     Active Substance: AMLODIPINE BESYLATE
  11. INSULIN [Concomitant]
     Active Substance: INSULIN NOS

REACTIONS (13)
  - Pain [None]
  - Rash generalised [None]
  - Blood glucose increased [None]
  - Pancreatitis [None]
  - Economic problem [None]
  - Urticaria [None]
  - Pruritus [None]
  - Renal failure [None]
  - Unevaluable event [None]
  - Micturition urgency [None]
  - Penile swelling [None]
  - Diverticulitis [None]
  - Testicular swelling [None]

NARRATIVE: CASE EVENT DATE: 201401
